FAERS Safety Report 7322022-3 (Version None)
Quarter: 2011Q1

REPORT INFORMATION
  Report Type: 
  Country: None (occurrence: None)
  Receive Date: 20110228
  Receipt Date: 20110216
  Transmission Date: 20110831
  Serious: No
  Sender: FDA-Public Use
  Company Number: US-PFIZER INC-2010110222

PATIENT
  Sex: Male

DRUGS (1)
  1. VIAGRA [Suspect]
     Dosage: 50 MG

REACTIONS (4)
  - EXPIRED DRUG ADMINISTERED [None]
  - COLD SWEAT [None]
  - DRUG INEFFECTIVE [None]
  - FLUSHING [None]
